FAERS Safety Report 4477067-8 (Version None)
Quarter: 2004Q4

REPORT INFORMATION
  Report Type: 
  Country: None (occurrence: None)
  Receive Date: 20041013
  Receipt Date: 20041007
  Transmission Date: 20050328
  Serious: Yes (Other)
  Sender: FDA-Public Use
  Company Number: WAES 0410DEU00076

PATIENT
  Age: 68 Year
  Sex: Male

DRUGS (3)
  1. COZAAR [Suspect]
     Indication: ESSENTIAL HYPERTENSION
     Dosage: 100 MG/
     Route: 048
     Dates: start: 20040611, end: 20040817
  2. [THERAPY UNSPECIFIED] [Concomitant]
  3. AMLODIPINE BESYLATE [Concomitant]

REACTIONS (2)
  - ARRHYTHMIA [None]
  - CARDIOVASCULAR DISORDER [None]
